FAERS Safety Report 20105495 (Version 1)
Quarter: 2021Q4

REPORT INFORMATION
  Report Type: Report from Study
  Country: CA (occurrence: CA)
  Receive Date: 20211124
  Receipt Date: 20211124
  Transmission Date: 20220304
  Serious: Yes (Other)
  Sender: FDA-Public Use
  Company Number: CA-CHIESI-2019AP026724

PATIENT
  Sex: Male
  Weight: 29 kg

DRUGS (3)
  1. DEFERIPRONE [Suspect]
     Active Substance: DEFERIPRONE
     Indication: Thalassaemia
     Dosage: 85 MG/KG, QD (1000 MG Q.AM AND 1500 MG Q.H.S.)
     Route: 048
     Dates: start: 20190724, end: 2019
  2. DEFERIPRONE [Suspect]
     Active Substance: DEFERIPRONE
     Dosage: 51 MG/KG, BID
     Route: 048
     Dates: start: 20191219, end: 20200611
  3. DEFERIPRONE [Suspect]
     Active Substance: DEFERIPRONE
     Dosage: 97 MG/KG, QD, IN 2 DIVIDED DOSES
     Route: 048
     Dates: start: 20200611

REACTIONS (1)
  - Influenza [Recovered/Resolved]

NARRATIVE: CASE EVENT DATE: 20190101
